FAERS Safety Report 19829272 (Version 1)
Quarter: 2021Q3

REPORT INFORMATION
  Report Type: Spontaneous
  Country: DE (occurrence: DE)
  Receive Date: 20210914
  Receipt Date: 20210914
  Transmission Date: 20211014
  Serious: Yes (Hospitalization)
  Sender: FDA-Public Use
  Company Number: DE-MYLANLABS-2021M1061070

PATIENT
  Age: 4 Year
  Sex: Female
  Weight: 13 kg

DRUGS (4)
  1. INSULIN [Suspect]
     Active Substance: INSULIN NOS
     Indication: DIABETES MELLITUS
     Dosage: 140 MG/125 MG/125 MG
  2. MULTIBIONTA                        /00111701/ [Concomitant]
     Active Substance: VITAMINS
     Indication: CONGENITAL ANOMALY
     Dosage: 36 GTT DROPS, QD
  3. VEDROP [Concomitant]
     Indication: CONGENITAL ANOMALY
     Dosage: 2 MILLILITER, QD, DAILY DOSE: 2 ML MILLILITRE(S) EVERY DAYS
  4. LEVETIRACETAM. [Suspect]
     Active Substance: LEVETIRACETAM
     Indication: EPILEPSY
     Dosage: 20 MILLIGRAM/KILOGRAM, QD, DAILY DOSE: 20 MG/KG MILLIGRAM(S)/KILOGRAM EVERY DAYS
     Route: 048

REACTIONS (4)
  - Electrolyte imbalance [Recovered/Resolved]
  - Tachycardia [Recovered/Resolved]
  - Ketoacidosis [Recovered/Resolved]
  - Glycosuria [Recovered/Resolved]

NARRATIVE: CASE EVENT DATE: 20180910
